FAERS Safety Report 6766067-0 (Version None)
Quarter: 2010Q2

REPORT INFORMATION
  Report Type: 
  Country: None (occurrence: None)
  Receive Date: 20100611
  Receipt Date: 20100602
  Transmission Date: 20101027
  Serious: Yes (Hospitalization)
  Sender: FDA-Public Use
  Company Number: B0659921A

PATIENT
  Sex: Female

DRUGS (3)
  1. RITALIN [Suspect]
     Route: 048
     Dates: end: 20100510
  2. SELO-ZOK [Suspect]
     Indication: MIGRAINE PROPHYLAXIS
     Dosage: 50MG PER DAY
     Route: 048
  3. IMIGRAN [Suspect]
     Indication: MIGRAINE
     Route: 058

REACTIONS (3)
  - EAR PAIN [None]
  - PAIN IN JAW [None]
  - TRISMUS [None]
